FAERS Safety Report 19375377 (Version 1)
Quarter: 2021Q2

REPORT INFORMATION
  Report Type: Spontaneous
  Country: SE (occurrence: IN)
  Receive Date: 20210604
  Receipt Date: 20210604
  Transmission Date: 20210717
  Serious: Yes (Congenital Anomaly, Other)
  Sender: FDA-Public Use
  Company Number: SE-PFIZER INC-2021609401

PATIENT

DRUGS (3)
  1. PHENOBARBITAL. [Suspect]
     Active Substance: PHENOBARBITAL
     Dosage: DURING 1ST, 2ND AND 3RD TRIMESTER OF PREGNANCY
  2. CLOBAZAM. [Suspect]
     Active Substance: CLOBAZAM
     Dosage: 10 MG, 1X/DAY (DURING 1ST, 2ND AND 3RD TRIMESTER OF PREGNANCY)
  3. PHENYTOIN. [Suspect]
     Active Substance: PHENYTOIN
     Dosage: DURING 1ST, 2ND AND 3RD TRIMESTER OF PREGNANCY

REACTIONS (2)
  - Patent ductus arteriosus [Unknown]
  - Maternal exposure during pregnancy [Unknown]
